FAERS Safety Report 22076918 (Version 1)
Quarter: 2023Q1

REPORT INFORMATION
  Report Type: Spontaneous
  Country: JP (occurrence: JP)
  Receive Date: 20230309
  Receipt Date: 20230309
  Transmission Date: 20230418
  Serious: Yes (Hospitalization, Other)
  Sender: FDA-Public Use
  Company Number: JP-TEVA-2023-JP-2863708

PATIENT
  Age: 87 Year
  Sex: Female

DRUGS (4)
  1. AZILECT [Suspect]
     Active Substance: RASAGILINE MESYLATE
     Indication: Parkinson^s disease
     Route: 048
  2. CARBIDOPA\LEVODOPA [Concomitant]
     Active Substance: CARBIDOPA\LEVODOPA
     Indication: Product used for unknown indication
     Route: 065
  3. CARBIDOPA\LEVODOPA [Concomitant]
     Active Substance: CARBIDOPA\LEVODOPA
     Route: 065
  4. DONEPEZIL HYDROCHLORIDE [Concomitant]
     Active Substance: DONEPEZIL HYDROCHLORIDE
     Indication: Disturbance in attention
     Route: 065

REACTIONS (3)
  - Hospitalisation [Unknown]
  - Fracture [Unknown]
  - Fall [Unknown]

NARRATIVE: CASE EVENT DATE: 20211201
